FAERS Safety Report 16802643 (Version 1)
Quarter: 2019Q3

REPORT INFORMATION
  Report Type: Spontaneous
  Country: US (occurrence: US)
  Receive Date: 20190912
  Receipt Date: 20190912
  Transmission Date: 20191005
  Serious: Yes (Other)
  Sender: FDA-Public Use
  Company Number: 2019US001036

PATIENT
  Sex: Male

DRUGS (1)
  1. ICAPS PLUS [Suspect]
     Active Substance: VITAMINS
     Route: 065

REACTIONS (3)
  - Product size issue [Unknown]
  - Choking [Recovered/Resolved]
  - Dysphagia [Recovered/Resolved]
